FAERS Safety Report 7356231-4 (Version None)
Quarter: 2011Q1

REPORT INFORMATION
  Report Type: 
  Country: None (occurrence: None)
  Receive Date: 20110316
  Receipt Date: 20100708
  Transmission Date: 20110831
  Serious: Yes (Hospitalization, Other)
  Sender: FDA-Public Use
  Company Number: US-BAYER-201020527NA

PATIENT
  Sex: Female
  Weight: 65.909 kg

DRUGS (17)
  1. CYMBALTA [Concomitant]
     Dates: start: 20080101
  2. TAPAZOL [Concomitant]
  3. YAZ [Suspect]
     Indication: UTERINE LEIOMYOMA
     Route: 048
     Dates: start: 20040101, end: 20100228
  4. YAZ [Suspect]
     Indication: MENSTRUAL CYCLE MANAGEMENT
  5. ZYRTEC [Concomitant]
     Indication: SINUSITIS
  6. ZYRTEC [Concomitant]
     Indication: PHARYNGITIS
  7. LUPRON [Concomitant]
     Indication: PHARYNGITIS
  8. LUPRON [Concomitant]
     Indication: SINUSITIS
  9. YAZ [Suspect]
     Indication: ACNE
  10. HEART MEDICATION (NOS) [Concomitant]
  11. AMOXICILLIN [Concomitant]
     Indication: SINUSITIS
  12. NSAID'S [Concomitant]
     Dates: start: 20000101
  13. YASMIN [Suspect]
     Indication: MENSTRUAL CYCLE MANAGEMENT
     Route: 048
     Dates: start: 20010101, end: 20040101
  14. SYNTHROID [Concomitant]
     Dates: start: 20000101
  15. AMOXICILLIN [Concomitant]
     Indication: PHARYNGITIS
  16. ANTIBIOTICS [Concomitant]
     Dosage: PRODUCTS' NAMES, DOSES, FREQUENCY, INDICATIONS ARE UNSPECIFIED
     Dates: start: 20000101
  17. TAPAZOL [Concomitant]
     Indication: GALLBLADDER DISORDER

REACTIONS (18)
  - ABORTION SPONTANEOUS [None]
  - OVARIAN CYST [None]
  - PHARYNGITIS [None]
  - THYROID DISORDER [None]
  - CHEST PAIN [None]
  - HYPERHIDROSIS [None]
  - MIGRAINE [None]
  - PALPITATIONS [None]
  - GALLBLADDER DISORDER [None]
  - ABDOMINAL PAIN [None]
  - UTERINE LEIOMYOMA [None]
  - CAESAREAN SECTION [None]
  - HEART VALVE INCOMPETENCE [None]
  - AMENORRHOEA [None]
  - VOMITING [None]
  - PREGNANCY ON ORAL CONTRACEPTIVE [None]
  - DRUG EXPOSURE DURING PREGNANCY [None]
  - SINUSITIS [None]
